FAERS Safety Report 21692189 (Version 1)
Quarter: 2022Q4

REPORT INFORMATION
  Report Type: Spontaneous
  Country: US (occurrence: US)
  Receive Date: 20221207
  Receipt Date: 20221207
  Transmission Date: 20230112
  Serious: No
  Sender: FDA-Public Use
  Company Number: US-LEO Pharma-346579

PATIENT
  Sex: Female

DRUGS (1)
  1. FINACEA [Suspect]
     Active Substance: AZELAIC ACID
     Indication: Rosacea
     Dates: start: 20221024, end: 20221028

REACTIONS (4)
  - Nasal dryness [Unknown]
  - Skin discolouration [Unknown]
  - Pruritus [Unknown]
  - Blister [Unknown]

NARRATIVE: CASE EVENT DATE: 20221024
